FAERS Safety Report 11278145 (Version 1)
Quarter: 2015Q3

REPORT INFORMATION
  Report Type: Spontaneous
  Country: US (occurrence: US)
  Receive Date: 20150717
  Receipt Date: 20150717
  Transmission Date: 20151125
  Serious: No
  Sender: FDA-Public Use
  Company Number: US-JNJFOC-20150616258

PATIENT
  Age: 17 Year
  Sex: Female
  Weight: 68.04 kg

DRUGS (1)
  1. ORTHO TRI CYCLEN [Suspect]
     Active Substance: ETHINYL ESTRADIOL\NORGESTIMATE
     Indication: CONTRACEPTION
     Route: 048
     Dates: start: 2014

REACTIONS (3)
  - Vaginal haemorrhage [Not Recovered/Not Resolved]
  - Drug dose omission [Recovered/Resolved]
  - Muscle spasms [Recovered/Resolved]

NARRATIVE: CASE EVENT DATE: 2014
